FAERS Safety Report 4623279-X (Version None)
Quarter: 2005Q1

REPORT INFORMATION
  Report Type: 
  Country: None (occurrence: None)
  Receive Date: 20050330
  Receipt Date: 20031125
  Transmission Date: 20050727
  Serious: Yes (Other)
  Sender: FDA-Public Use
  Company Number: 10113

PATIENT
  Age: 48 Year
  Sex: Female

DRUGS (24)
  1. METHOTREXATE [Suspect]
     Dosage: 20 MG WEEKLY
     Dates: start: 19930101, end: 20030929
  2. INFLIXIMAB [Suspect]
     Dosage: 300 MG OTH
     Dates: start: 20020101, end: 20030811
  3. PREDNISONE [Suspect]
     Dosage: 5 MG DAILY
     Dates: start: 19781101
  4. NORGESTREL /ETHINYL ESTRADIOL [Concomitant]
  5. ATORVASTATIN CALCIUM [Concomitant]
  6. AZITHROMYCIN [Concomitant]
  7. CALCITONIN-SALMON [Concomitant]
  8. CETIRIZINE/PSEUDOPHEDRINE [Concomitant]
  9. CODEINE PHOSPHATE/PARACETAMOL [Concomitant]
  10. FOLIC ACID [Concomitant]
  11. FUROSEMIDE [Concomitant]
  12. GLIBENCLAMIDE [Concomitant]
  13. GUAIFENESIN/HYDROCODONE BITARTRATE [Concomitant]
  14. GUAIFENESIN/PSEUDOEPHEDRINE HYDROCHLORIDE [Concomitant]
  15. TRIAMTERENE AND HYDROCHLOROTHIAZIDE [Concomitant]
  16. LORAZEPAM [Concomitant]
  17. NABUMETONE [Concomitant]
  18. NADOLOL [Concomitant]
  19. NITROFURANTOIN [Concomitant]
  20. PIOGLITAZONE HYDROCHLORIDE [Concomitant]
  21. POTASSIUM CHLORIDE [Concomitant]
  22. PROMETHAZINE HCL [Concomitant]
  23. RANITIDINE [Concomitant]
  24. SALBUTAMOL [Concomitant]

REACTIONS (1)
  - MENINGITIS CRYPTOCOCCAL [None]
